FAERS Safety Report 8832114 (Version 1)
Quarter: 2012Q4

REPORT INFORMATION
  Report Type: 
  Country: US (occurrence: US)
  Receive Date: 20121009
  Receipt Date: 20121009
  Transmission Date: 20130627
  Serious: Yes (Other)
  Sender: FDA-Public Use
  Company Number: US-ROCHE-1130758

PATIENT
  Sex: Female

DRUGS (12)
  1. RITUXAN [Suspect]
     Indication: NON-HODGKIN^S LYMPHOMA
     Route: 065
     Dates: start: 19980209
  2. RITUXAN [Suspect]
     Route: 065
     Dates: start: 19980216
  3. RITUXAN [Suspect]
     Route: 065
     Dates: start: 19980223
  4. RITUXAN [Suspect]
     Route: 065
     Dates: start: 19980302
  5. PREDNISONE [Concomitant]
     Route: 065
     Dates: start: 19980209
  6. FENTANYL [Concomitant]
  7. MOTRIN [Concomitant]
  8. COMPAZINE [Concomitant]
  9. MAALOX (CALCIUM CARBONATE) [Concomitant]
  10. EPOGEN [Concomitant]
  11. NEUPOGEN [Concomitant]
  12. LASIX [Concomitant]

REACTIONS (14)
  - Abdominal discomfort [Unknown]
  - Abdominal mass [Unknown]
  - Inguinal mass [Unknown]
  - Weight decreased [Unknown]
  - Fatigue [Unknown]
  - Decreased appetite [Unknown]
  - Herpes zoster [Unknown]
  - Post herpetic neuralgia [Unknown]
  - Thrombocytopenia [Unknown]
  - Bone marrow failure [Unknown]
  - Lymphadenopathy [Unknown]
  - Kyphosis [Unknown]
  - Oedema [Unknown]
  - Deep vein thrombosis [Unknown]
